FAERS Safety Report 5158719-3 (Version None)
Quarter: 2006Q4

REPORT INFORMATION
  Report Type: 
  Country: None (occurrence: None)
  Receive Date: 20061128
  Receipt Date: 20060710
  Transmission Date: 20070319
  Serious: Yes (Hospitalization)
  Sender: FDA-Public Use
  Company Number: NL-GLAXOSMITHKLINE-B0430759A

PATIENT
  Age: 4 Year
  Sex: Male
  Weight: 16 kg

DRUGS (3)
  1. ABACAVIR SULFATE [Suspect]
     Indication: HIV INFECTION
     Dosage: 270MG PER DAY
     Route: 065
     Dates: start: 20060626, end: 20060707
  2. LAMIVUDINE [Concomitant]
     Dosage: 140MG PER DAY
     Route: 065
     Dates: start: 20051004
  3. LOPINAVIR + RITONAVIR [Concomitant]
     Route: 048
     Dates: start: 20051004

REACTIONS (8)
  - CONJUNCTIVITIS [None]
  - DERMATITIS EXFOLIATIVE [None]
  - EPSTEIN-BARR VIRUS INFECTION [None]
  - HYPERSENSITIVITY [None]
  - KAWASAKI'S DISEASE [None]
  - LYMPHADENOPATHY [None]
  - PYREXIA [None]
  - VASCULITIS [None]
